FAERS Safety Report 12247215 (Version 2)
Quarter: 2016Q2

REPORT INFORMATION
  Report Type: Report from Study
  Country: PK (occurrence: PK)
  Receive Date: 20160407
  Receipt Date: 20160414
  Transmission Date: 20160815
  Serious: Yes (Hospitalization, Disabling)
  Sender: FDA-Public Use
  Company Number: PHHY2016PK045747

PATIENT
  Age: 57 Year
  Sex: Female

DRUGS (6)
  1. LASIX [Concomitant]
     Active Substance: FUROSEMIDE
     Indication: PRODUCT USED FOR UNKNOWN INDICATION
     Dosage: 40 MG, QD
     Route: 065
  2. VALTEC AM [Concomitant]
     Indication: PRODUCT USED FOR UNKNOWN INDICATION
     Dosage: 1 DF, QD (1 IN THE MORNING)
     Route: 065
  3. ACLASTA [Suspect]
     Active Substance: ZOLEDRONIC ACID
     Indication: OSTEOPOROSIS
     Dosage: 1 DF, Q12MO (5MG/100ML)
     Route: 042
     Dates: start: 20130502
  4. WARFARIN [Concomitant]
     Active Substance: WARFARIN
     Indication: PRODUCT USED FOR UNKNOWN INDICATION
     Dosage: 0.5 DF, (FOR 3 DAYS, THEN 1 TABLET)
     Route: 065
  5. XAVOR [Concomitant]
     Indication: PRODUCT USED FOR UNKNOWN INDICATION
     Dosage: 80 MG, BID (1 IN MORRNING AND 1 AT NIGHT)
     Route: 065
  6. CALAN [Concomitant]
     Active Substance: VERAPAMIL HYDROCHLORIDE
     Indication: PRODUCT USED FOR UNKNOWN INDICATION
     Dosage: 75 MG, QD
     Route: 065

REACTIONS (11)
  - Disorientation [Unknown]
  - Dysarthria [Unknown]
  - Balance disorder [Unknown]
  - Aphasia [Unknown]
  - Gait disturbance [Unknown]
  - Motor dysfunction [Unknown]
  - Headache [Unknown]
  - Cerebrovascular accident [Recovering/Resolving]
  - Fall [Unknown]
  - Dizziness [Unknown]
  - Sensory loss [Unknown]

NARRATIVE: CASE EVENT DATE: 20150901
